FAERS Safety Report 24418047 (Version 3)
Quarter: 2025Q1

REPORT INFORMATION
  Report Type: Report from Study
  Country: US (occurrence: US)
  Receive Date: 20241009
  Receipt Date: 20250108
  Transmission Date: 20250408
  Serious: Yes (Other)
  Sender: ABBVIE
  Company Number: US-ABBVIE-5953785

PATIENT
  Age: 63 Year
  Sex: Female
  Weight: 60.781 kg

DRUGS (3)
  1. RINVOQ [Suspect]
     Active Substance: UPADACITINIB
     Indication: Crohn^s disease
     Dosage: FORM STRENGTH: 30 MILLIGRAM
     Route: 048
     Dates: start: 20231103
  2. ATORVASTATIN [Concomitant]
     Active Substance: ATORVASTATIN
     Indication: Blood cholesterol
  3. LOSARTAN [Concomitant]
     Active Substance: LOSARTAN
     Indication: Hypertension

REACTIONS (7)
  - Invasive ductal breast carcinoma [Not Recovered/Not Resolved]
  - Breast hyperplasia [Not Recovered/Not Resolved]
  - Haematoma [Not Recovered/Not Resolved]
  - Breast mass [Not Recovered/Not Resolved]
  - Squamous cell carcinoma of skin [Unknown]
  - Scar [Not Recovered/Not Resolved]
  - Herpes zoster [Recovering/Resolving]

NARRATIVE: CASE EVENT DATE: 20240101
